FAERS Safety Report 7167563-7 (Version None)
Quarter: 2010Q4

REPORT INFORMATION
  Report Type: 
  Country: None (occurrence: None)
  Receive Date: 20101216
  Receipt Date: 20100406
  Transmission Date: 20110411
  Serious: No
  Sender: FDA-Public Use
  Company Number: A0853654A

PATIENT
  Age: 28 Year
  Sex: Male

DRUGS (1)
  1. NICOTINE POLACRILEX [Suspect]
     Dates: start: 20100401, end: 20100401

REACTIONS (1)
  - ORAL DISCOMFORT [None]
